FAERS Safety Report 20036224 (Version 1)
Quarter: 2021Q4

REPORT INFORMATION
  Report Type: Spontaneous
  Country: FR (occurrence: FR)
  Receive Date: 20211105
  Receipt Date: 20211105
  Transmission Date: 20220303
  Serious: Yes (Hospitalization, Other)
  Sender: FDA-Public Use
  Company Number: FR-ABBVIE-21K-056-4147331-00

PATIENT
  Age: 49 Year
  Sex: Male

DRUGS (7)
  1. VALPROATE SODIUM [Suspect]
     Active Substance: VALPROATE SODIUM
     Indication: Medication error
     Route: 048
     Dates: start: 20190930, end: 20190930
  2. LAMOTRIGINE [Suspect]
     Active Substance: LAMOTRIGINE
     Indication: Epilepsy
     Route: 048
     Dates: start: 20190930, end: 20190930
  3. AMISULPRIDE [Suspect]
     Active Substance: AMISULPRIDE
     Indication: Medication error
     Route: 048
     Dates: start: 20190930, end: 20190930
  4. CLONAZEPAM [Suspect]
     Active Substance: CLONAZEPAM
     Indication: Medication error
     Route: 048
     Dates: start: 20190930, end: 20190930
  5. CLOBAZAM [Suspect]
     Active Substance: CLOBAZAM
     Indication: Anxiety
     Route: 048
     Dates: start: 20190930, end: 20190930
  6. LEVETIRACETAM [Suspect]
     Active Substance: LEVETIRACETAM
     Indication: Epilepsy
     Route: 048
     Dates: start: 20190930, end: 20190930
  7. CARBAMAZEPINE [Suspect]
     Active Substance: CARBAMAZEPINE
     Indication: Medication error
     Route: 048
     Dates: start: 20190930, end: 20190930

REACTIONS (4)
  - Altered state of consciousness [Recovered/Resolved]
  - Balance disorder [Recovered/Resolved]
  - Fall [Recovered/Resolved]
  - Medication error [Unknown]

NARRATIVE: CASE EVENT DATE: 20190930
